FAERS Safety Report 8790686 (Version 1)
Quarter: 2012Q4

REPORT INFORMATION
  Report Type: Spontaneous
  Country: US (occurrence: None)
  Receive Date: 20120913
  Receipt Date: 20120913
  Transmission Date: 20130627
  Serious: Yes (Other)
  Sender: FDA-Public Use
  Company Number: None

PATIENT
  Age: 20 Year
  Sex: Male
  Weight: 68 kg

DRUGS (2)
  1. CARBATROL [Suspect]
     Dosage: two twice daily
  2. CARBATROL [Suspect]
     Dosage: one at night

REACTIONS (2)
  - Product substitution issue [None]
  - Convulsion [None]
